FAERS Safety Report 7155583-8 (Version None)
Quarter: 2010Q4

REPORT INFORMATION
  Report Type: 
  Country: None (occurrence: None)
  Receive Date: 20101214
  Receipt Date: 20091116
  Transmission Date: 20110411
  Serious: No
  Sender: FDA-Public Use
  Company Number: US-AMGEN-KDL374850

PATIENT

DRUGS (7)
  1. ENBREL [Suspect]
     Indication: RHEUMATOID ARTHRITIS
     Dosage: 50 MG, QWK
     Route: 058
  2. DULOXETINE HYDROCHLORIDE [Concomitant]
  3. TRAMADOL HYDROCHLORIDE [Concomitant]
  4. SALBUTAMOL [Concomitant]
  5. TIZANIDINE [Concomitant]
  6. LEVOTHYROXINE SODIUM [Concomitant]
  7. HYDROXYCHLOROQUINE SULFATE [Concomitant]

REACTIONS (2)
  - INFLUENZA [None]
  - SINUSITIS [None]
